FAERS Safety Report 17855901 (Version 1)
Quarter: 2020Q2

REPORT INFORMATION
  Report Type: Spontaneous
  Country: US (occurrence: US)
  Receive Date: 20200603
  Receipt Date: 20200603
  Transmission Date: 20200714
  Serious: No
  Sender: FDA-Public Use
  Company Number: US-BTG-201900250

PATIENT
  Age: 79 Year
  Sex: Male

DRUGS (2)
  1. VORAXAZE [Suspect]
     Active Substance: GLUCARPIDASE
     Indication: TOXICITY TO VARIOUS AGENTS
     Dosage: ONE DOSE OF 50 UNITS/KG AT 2PM EST
     Route: 065
     Dates: start: 20191115
  2. METHOTREXATE. [Suspect]
     Active Substance: METHOTREXATE
     Indication: CENTRAL NERVOUS SYSTEM LYMPHOMA
     Dosage: UNKNOWN
     Route: 042

REACTIONS (1)
  - Laboratory test interference [Unknown]
